FAERS Safety Report 9678586 (Version 2)
Quarter: 2013Q4

REPORT INFORMATION
  Report Type: Spontaneous
  Country: JP (occurrence: JP)
  Receive Date: 20131108
  Receipt Date: 20131121
  Transmission Date: 20140711
  Serious: Yes (Other)
  Sender: FDA-Public Use
  Company Number: JP-BAXTER-2013BAX044272

PATIENT
  Age: 4 Decade
  Sex: Female

DRUGS (7)
  1. SUPRANE [Suspect]
     Indication: MAINTENANCE OF ANAESTHESIA
     Dosage: 5.4-5.6%
     Route: 055
  2. PROPOFOL [Suspect]
     Indication: COLECTOMY
     Route: 065
  3. FENTANYL CITRATE [Suspect]
     Indication: COLECTOMY
     Route: 065
  4. ROCURONIUM BROMIDE [Suspect]
     Indication: COLECTOMY
     Route: 065
  5. REMIFENTANIL HYDROCHLORIDE [Suspect]
     Indication: COLECTOMY
     Route: 065
  6. KETAMINE HYDROCHLORIDE [Suspect]
     Indication: COLECTOMY
     Route: 065
  7. SEVOFLURANE [Concomitant]
     Indication: MAINTENANCE OF ANAESTHESIA
     Route: 065

REACTIONS (1)
  - Bronchospasm [Recovered/Resolved]
